FAERS Safety Report 12334864 (Version 1)
Quarter: 2016Q2

REPORT INFORMATION
  Report Type: Report from Study
  Country: CO (occurrence: CO)
  Receive Date: 20160504
  Receipt Date: 20160504
  Transmission Date: 20160815
  Serious: Yes (Other)
  Sender: FDA-Public Use
  Company Number: CO-ABBVIE-16K-036-1617936-00

PATIENT
  Age: 52 Year
  Sex: Female
  Weight: 60 kg

DRUGS (2)
  1. HUMIRA [Suspect]
     Active Substance: ADALIMUMAB
     Indication: PSORIASIS
     Route: 058
     Dates: start: 20160112, end: 20160112
  2. USTEKINUMAB [Suspect]
     Active Substance: USTEKINUMAB
     Indication: PRODUCT USED FOR UNKNOWN INDICATION
     Route: 065

REACTIONS (10)
  - Application site erythema [Recovered/Resolved]
  - Respiratory distress [Recovered/Resolved]
  - Erythema [Unknown]
  - Dermatitis allergic [Unknown]
  - Tachycardia [Unknown]
  - Application site rash [Recovered/Resolved]
  - Cough [Recovered/Resolved]
  - Allergic cough [Unknown]
  - Tachycardia [Recovered/Resolved]
  - Allergic respiratory symptom [Unknown]

NARRATIVE: CASE EVENT DATE: 20160305
